FAERS Safety Report 7285371 (Version 10)
Quarter: 2014Q1

REPORT INFORMATION
  Report Type: Spontaneous
  Country: US (occurrence: US)
  Receive Date: 20100219
  Receipt Date: 20140124
  Transmission Date: 20141002
  Serious: Yes (Hospitalization, Other)
  Sender: FDA-Public Use
  Company Number: US-BAYER-201014315NA

PATIENT
  Age: 30 Year
  Sex: Female
  Weight: 59.09 kg

DRUGS (6)
  1. YASMIN [Suspect]
     Indication: ORAL CONTRACEPTION
     Dosage: UNK
     Route: 048
     Dates: start: 200601, end: 200603
  2. YAZ [Suspect]
     Indication: ORAL CONTRACEPTION
     Dosage: UNK
     Route: 048
     Dates: start: 200603, end: 201001
  3. NSAID^S [Concomitant]
  4. ANTIBIOTICS [Concomitant]
  5. VALTREX [Concomitant]
     Indication: HERPES VIRUS INFECTION
  6. OMNICEF [Concomitant]
     Dosage: 300 MG, UNK
     Dates: start: 20080409

REACTIONS (8)
  - Cholecystitis [Unknown]
  - Cholecystitis [Unknown]
  - Biliary dyskinesia [None]
  - Abdominal pain [Unknown]
  - Abdominal distension [Unknown]
  - Constipation [Unknown]
  - Diarrhoea [Unknown]
  - Umbilical hernia, obstructive [Unknown]
